FAERS Safety Report 23691869 (Version 1)
Quarter: 2024Q2

REPORT INFORMATION
  Report Type: Spontaneous
  Country: US (occurrence: US)
  Receive Date: 20240401
  Receipt Date: 20240401
  Transmission Date: 20240715
  Serious: Yes (Hospitalization, Other)
  Sender: FDA-Public Use
  Company Number: US-BRISTOL-MYERS SQUIBB COMPANY-2024-049284

PATIENT
  Age: 81 Year
  Sex: Male
  Weight: 116.5 kg

DRUGS (25)
  1. REVLIMID [Suspect]
     Active Substance: LENALIDOMIDE
     Indication: Plasma cell myeloma
     Route: 048
     Dates: start: 20230821
  2. FUROSEMIDE [Concomitant]
     Active Substance: FUROSEMIDE
  3. ADVAIR HFA [Concomitant]
     Active Substance: FLUTICASONE PROPIONATE\SALMETEROL XINAFOATE
  4. AMLODIPINE [Concomitant]
     Active Substance: AMLODIPINE BESYLATE
  5. ASPIRIN [Concomitant]
     Active Substance: ASPIRIN
  6. ATORVASTATIN [Concomitant]
     Active Substance: ATORVASTATIN
  7. AZASAN [Concomitant]
     Active Substance: AZATHIOPRINE
  8. BROVANA [Concomitant]
     Active Substance: ARFORMOTEROL TARTRATE
  9. BUDESONIDE [Concomitant]
     Active Substance: BUDESONIDE
  10. BYDUREON [Concomitant]
     Active Substance: EXENATIDE
  11. CALCITRIOL [Concomitant]
     Active Substance: CALCITRIOL
  12. PROAIR HFA [Concomitant]
     Active Substance: ALBUTEROL SULFATE
  13. VITAMIN C [Concomitant]
     Active Substance: ASCORBIC ACID
  14. VITAMIN D NOS [Concomitant]
     Active Substance: VITAMIN D NOS
  15. CARVEDILOL [Concomitant]
     Active Substance: CARVEDILOL
  16. DUONEB [Concomitant]
     Active Substance: ALBUTEROL SULFATE\IPRATROPIUM BROMIDE
  17. EPLERENONE [Concomitant]
     Active Substance: EPLERENONE
  18. FERROUS SULFATE [Concomitant]
     Active Substance: FERROUS SULFATE
  19. FLUTICASONE [Concomitant]
     Active Substance: FLUTICASONE
  20. GLIPIZIDE [Concomitant]
     Active Substance: GLIPIZIDE
  21. IMDUR [Concomitant]
     Active Substance: ISOSORBIDE MONONITRATE
  22. MELATONIN [Concomitant]
     Active Substance: MELATONIN
  23. LEVEMIR [Concomitant]
     Active Substance: INSULIN DETEMIR
  24. NOVOLOG [Concomitant]
     Active Substance: INSULIN ASPART
  25. OMEPRAZOLE [Concomitant]
     Active Substance: OMEPRAZOLE

REACTIONS (2)
  - Influenza [Unknown]
  - Pneumonia [Unknown]

NARRATIVE: CASE EVENT DATE: 20240207
